FAERS Safety Report 19010259 (Version 7)
Quarter: 2022Q4

REPORT INFORMATION
  Report Type: Spontaneous
  Country: AR (occurrence: AR)
  Receive Date: 20210315
  Receipt Date: 20221110
  Transmission Date: 20230113
  Serious: Yes (Hospitalization, Other)
  Sender: FDA-Public Use
  Company Number: AR-AMICUS THERAPEUTICS, INC.-AMI_734

PATIENT
  Sex: Male

DRUGS (12)
  1. GALAFOLD [Suspect]
     Active Substance: MIGALASTAT HYDROCHLORIDE
     Indication: Fabry^s disease
     Dosage: 123 MILLIGRAM, EVERY 72 HOURS
     Route: 048
     Dates: start: 20200129, end: 20210304
  2. GALAFOLD [Suspect]
     Active Substance: MIGALASTAT HYDROCHLORIDE
     Dosage: 123 MILLIGRAM, EVERY 72 HOURS
     Route: 048
     Dates: start: 20210305, end: 20210531
  3. GALAFOLD [Suspect]
     Active Substance: MIGALASTAT HYDROCHLORIDE
     Dosage: 123 MILLIGRAM, EVERY 72 HOURS
     Route: 048
     Dates: start: 20210706, end: 20211211
  4. GALAFOLD [Suspect]
     Active Substance: MIGALASTAT HYDROCHLORIDE
     Dosage: 123 MILLIGRAM, QOD
     Route: 048
     Dates: start: 20211212
  5. CINACALCET [Suspect]
     Active Substance: CINACALCET
     Indication: Hyperparathyroidism
     Dosage: 30 MILLIGRAM, QD
     Route: 065
     Dates: start: 2017
  6. TACROLIMUS [Concomitant]
     Active Substance: TACROLIMUS
     Indication: Renal transplant
     Dosage: 2 MILLIGRAM, QD (1 PILL/DAY)
     Route: 065
     Dates: start: 2017
  7. TACROLIMUS [Concomitant]
     Active Substance: TACROLIMUS
     Dosage: 1 MILLIGRAM, Q12H
     Route: 065
     Dates: start: 20210701
  8. LOSARTAN [Concomitant]
     Active Substance: LOSARTAN
     Indication: Product used for unknown indication
     Dosage: 75 MILLIGRAM, QD
     Route: 065
     Dates: start: 2013
  9. CARVEDILOL [Concomitant]
     Active Substance: CARVEDILOL
     Indication: Product used for unknown indication
     Dosage: 12.5 MILLIGRAM, QD
     Route: 065
     Dates: start: 2013
  10. MYCOPHENOLIC ACID [Concomitant]
     Active Substance: MYCOPHENOLIC ACID
     Indication: Renal transplant
     Dosage: 500 MILLIGRAM, 3 PILLS/DAY
     Route: 065
     Dates: start: 2017
  11. MYCOPHENOLIC ACID [Concomitant]
     Active Substance: MYCOPHENOLIC ACID
     Dosage: 500 MILLIGRAM, Q8H
     Route: 065
     Dates: start: 20210701
  12. MEPREDNISONE [Concomitant]
     Active Substance: MEPREDNISONE
     Indication: Renal transplant
     Dosage: 4 MILLIGRAM, QD (1 PILL/DAY)
     Route: 065
     Dates: start: 2017

REACTIONS (8)
  - COVID-19 pneumonia [Recovered/Resolved]
  - Cataract [Recovered/Resolved]
  - Inappropriate schedule of product administration [Recovered/Resolved]
  - Product dose omission issue [Recovered/Resolved]
  - Product dose omission issue [Recovered/Resolved]
  - Product administration interrupted [Recovered/Resolved]
  - Diarrhoea [Recovered/Resolved]
  - Nausea [Recovered/Resolved]

NARRATIVE: CASE EVENT DATE: 20200101
